FAERS Safety Report 5813157-2 (Version None)
Quarter: 2008Q3

REPORT INFORMATION
  Report Type: 
  Country: None (occurrence: None)
  Receive Date: 20080717
  Receipt Date: 20080307
  Transmission Date: 20090109
  Serious: No
  Sender: FDA-Public Use
  Company Number: A0713968A

PATIENT
  Age: 23 Year
  Sex: Female

DRUGS (1)
  1. NICORETTE [Suspect]
     Dates: start: 20080228, end: 20080304

REACTIONS (2)
  - DRY MOUTH [None]
  - GINGIVAL SWELLING [None]
